FAERS Safety Report 8452731-4 (Version None)
Quarter: 2012Q2

REPORT INFORMATION
  Report Type: 
  Country: None (occurrence: None)
  Receive Date: 20120620
  Receipt Date: 20120423
  Transmission Date: 20120825
  Serious: No
  Sender: FDA-Public Use
  Company Number: US-VERTEX PHARMACEUTICALS INC.-AE-2012-005874

PATIENT
  Sex: Female

DRUGS (11)
  1. LASIX [Concomitant]
     Route: 048
  2. PREDNISONE TAB [Concomitant]
  3. INCIVEK [Suspect]
     Indication: HEPATITIS C
     Route: 048
     Dates: start: 20120401
  4. CYCLOSPORINE [Concomitant]
     Route: 048
  5. NORVASC [Concomitant]
     Route: 048
  6. RIBASPHERE [Concomitant]
     Indication: HEPATITIS C
     Route: 048
     Dates: start: 20120401
  7. METOPROLOL SUCCINATE EXTENDED RELEASE [Concomitant]
     Route: 048
  8. SOMA [Concomitant]
     Route: 048
  9. PEGASYS [Concomitant]
     Indication: HEPATITIS C
     Route: 058
     Dates: start: 20120401
  10. ACIPHEX [Concomitant]
     Route: 048
  11. ZOLOFT [Concomitant]
     Route: 048

REACTIONS (2)
  - CHEST PAIN [None]
  - VOMITING [None]
